APPROVED DRUG PRODUCT: EPLERENONE
Active Ingredient: EPLERENONE
Strength: 25MG
Dosage Form/Route: TABLET;ORAL
Application: A203896 | Product #001
Applicant: AARXION ANDA HOLDING LLC
Approved: Feb 2, 2017 | RLD: No | RS: No | Type: DISCN